FAERS Safety Report 6599153-9 (Version None)
Quarter: 2010Q1

REPORT INFORMATION
  Report Type: 
  Country: None (occurrence: None)
  Receive Date: 20100224
  Receipt Date: 20100218
  Transmission Date: 20100710
  Serious: Yes (Hospitalization, Other)
  Sender: FDA-Public Use
  Company Number: SE-BRISTOL-MYERS SQUIBB COMPANY-14982086

PATIENT
  Age: 71 Year
  Sex: Female

DRUGS (3)
  1. BICLIN INJ 250 MG [Suspect]
     Indication: MYCOBACTERIUM AVIUM COMPLEX INFECTION
  2. MYAMBUTOL [Concomitant]
  3. KLACID [Concomitant]

REACTIONS (2)
  - HEARING IMPAIRED [None]
  - PARAPARESIS [None]
